FAERS Safety Report 24809627 (Version 3)
Quarter: 2025Q1

REPORT INFORMATION
  Report Type: Spontaneous
  Country: US (occurrence: US)
  Receive Date: 20250106
  Receipt Date: 20250228
  Transmission Date: 20250408
  Serious: Yes (Hospitalization, Other)
  Sender: MYLAN
  Company Number: US-MYLANLABS-2024M1117734

PATIENT
  Age: 6 Year
  Sex: Female
  Weight: 25.6 kg

DRUGS (11)
  1. AMLODIPINE [Suspect]
     Active Substance: AMLODIPINE BESYLATE
     Indication: Hypertension
  2. AMLODIPINE [Suspect]
     Active Substance: AMLODIPINE BESYLATE
     Dosage: 5 MILLIGRAM, BID
     Dates: start: 20250111, end: 20250115
  3. ENALAPRIL [Suspect]
     Active Substance: ENALAPRIL
     Indication: Hypertension
  4. ENALAPRIL [Suspect]
     Active Substance: ENALAPRIL
     Dosage: 5 MILLIGRAM, BID
     Dates: start: 20250114, end: 20250115
  5. HYDROFLUMETHIAZIDE\SPIRONOLACTONE [Suspect]
     Active Substance: HYDROFLUMETHIAZIDE\SPIRONOLACTONE
     Indication: Hypertension
  6. CLONIDINE [Suspect]
     Active Substance: CLONIDINE
     Indication: Hypertension
  7. CLONIDINE [Suspect]
     Active Substance: CLONIDINE
     Indication: Trichotillomania
  8. CLONIDINE [Suspect]
     Active Substance: CLONIDINE
     Indication: Agitation
     Dosage: 100 MICROGRAM, PM  (EXTENDED RELEASE, NIGHTLY)
     Dates: start: 20241227, end: 20241228
  9. CLONIDINE [Suspect]
     Active Substance: CLONIDINE
  10. TADALAFIL [Suspect]
     Active Substance: TADALAFIL
     Indication: Pulmonary hypertension
  11. PENTAMIDINE [Suspect]
     Active Substance: PENTAMIDINE
     Indication: Product used for unknown indication

REACTIONS (17)
  - Hypokalaemia [Unknown]
  - Metabolic acidosis [Unknown]
  - Hypoglycaemia [Unknown]
  - Electrolyte imbalance [Unknown]
  - Dehydration [Recovered/Resolved]
  - Poor peripheral circulation [Recovered/Resolved]
  - Lethargy [Recovered/Resolved]
  - Gastroenteritis [Recovered/Resolved]
  - Small intestinal obstruction [Recovered/Resolved]
  - Hypotension [Unknown]
  - Acute kidney injury [Unknown]
  - Gastroenteritis viral [Unknown]
  - Hyponatraemia [Unknown]
  - Hypophagia [Unknown]
  - Vomiting [Not Recovered/Not Resolved]
  - Fatigue [Unknown]
  - Abdominal pain [Not Recovered/Not Resolved]

NARRATIVE: CASE EVENT DATE: 20241228
